FAERS Safety Report 8423805-9 (Version None)
Quarter: 2012Q2

REPORT INFORMATION
  Report Type: 
  Country: None (occurrence: None)
  Receive Date: 20120608
  Receipt Date: 20120110
  Transmission Date: 20120825
  Serious: No
  Sender: FDA-Public Use
  Company Number: US-ASTRAZENECA-2010SE21385

PATIENT
  Age: 58 Year
  Sex: Female

DRUGS (2)
  1. ATACAND [Suspect]
     Route: 048
  2. ATACAND HCT [Suspect]
     Route: 048

REACTIONS (9)
  - ANXIETY [None]
  - DRUG DOSE OMISSION [None]
  - SWELLING [None]
  - OEDEMA [None]
  - THYROID DISORDER [None]
  - ADVERSE EVENT [None]
  - NERVOUSNESS [None]
  - MALAISE [None]
  - FLUID RETENTION [None]
